FAERS Safety Report 9950908 (Version 1)
Quarter: 2014Q1

REPORT INFORMATION
  Report Type: Report from Study
  Country: US (occurrence: US)
  Receive Date: 20140304
  Receipt Date: 20140304
  Transmission Date: 20141002
  Serious: No
  Sender: FDA-Public Use
  Company Number: US-ABBVIE-13P-163-1067057-00

PATIENT
  Age: 61 Year
  Sex: Female

DRUGS (3)
  1. HUMIRA [Suspect]
     Indication: CROHN^S DISEASE
     Dates: start: 2009
  2. MULTIVITAMIN [Concomitant]
     Indication: PRODUCT USED FOR UNKNOWN INDICATION
  3. ALEVE ARTHRITIS [Concomitant]
     Indication: SPINAL OSTEOARTHRITIS
     Dates: end: 201301

REACTIONS (3)
  - Contusion [Recovering/Resolving]
  - Accident [Unknown]
  - Musculoskeletal chest pain [Unknown]
